FAERS Safety Report 10181894 (Version 2)
Quarter: 2014Q2

REPORT INFORMATION
  Report Type: Spontaneous
  Country: US (occurrence: US)
  Receive Date: 20140519
  Receipt Date: 20140519
  Transmission Date: 20141212
  Serious: Yes (Hospitalization, Other)
  Sender: FDA-Public Use
  Company Number: US-MYLANLABS-2014S1010841

PATIENT
  Age: 73 Year
  Sex: Female
  Weight: 64.7 kg

DRUGS (2)
  1. MELPHALAN HYDROCHLORIDE FOR INJECTION [Suspect]
     Indication: BONE MARROW CONDITIONING REGIMEN
     Dosage: X 2 DOSES
     Route: 042
     Dates: start: 20130930, end: 20131001
  2. CYTOXAN [Suspect]
     Indication: HAEMATOPOIETIC STEM CELL MOBILISATION
     Route: 042
     Dates: start: 20130913, end: 20130913

REACTIONS (3)
  - Systemic inflammatory response syndrome [Not Recovered/Not Resolved]
  - Pre-engraftment immune reaction [Not Recovered/Not Resolved]
  - Pneumonia [Not Recovered/Not Resolved]
